FAERS Safety Report 18252928 (Version 5)
Quarter: 2023Q2

REPORT INFORMATION
  Report Type: Spontaneous
  Country: US (occurrence: US)
  Receive Date: 20200910
  Receipt Date: 20230411
  Transmission Date: 20230722
  Serious: Yes (Other)
  Sender: FDA-Public Use
  Company Number: US-GILEAD-2020-0494312

PATIENT
  Age: 52 Year
  Sex: Female
  Weight: 77.11 kg

DRUGS (76)
  1. TRUVADA [Suspect]
     Active Substance: EMTRICITABINE\TENOFOVIR DISOPROXIL FUMARATE
     Indication: HIV infection
     Dosage: UNK
     Route: 048
     Dates: start: 2007
  2. TRUVADA [Suspect]
     Active Substance: EMTRICITABINE\TENOFOVIR DISOPROXIL FUMARATE
     Dosage: UNK
     Route: 048
     Dates: start: 2010, end: 2015
  3. TRUVADA [Suspect]
     Active Substance: EMTRICITABINE\TENOFOVIR DISOPROXIL FUMARATE
     Dosage: UNK
     Route: 048
     Dates: start: 20121205, end: 20150824
  4. EPIVIR [Concomitant]
     Active Substance: LAMIVUDINE
     Indication: HIV infection
  5. ISENTRESS [Concomitant]
     Active Substance: RALTEGRAVIR POTASSIUM
     Indication: HIV infection
  6. JULUCA [Concomitant]
     Active Substance: DOLUTEGRAVIR SODIUM\RILPIVIRINE HYDROCHLORIDE
     Indication: HIV infection
  7. REYATAZ [Concomitant]
     Active Substance: ATAZANAVIR SULFATE
     Indication: HIV infection
  8. ZIAGEN [Concomitant]
     Active Substance: ABACAVIR SULFATE
     Indication: HIV infection
  9. ABILIFY [Concomitant]
     Active Substance: ARIPIPRAZOLE
  10. ACETAMINOPHEN [Concomitant]
     Active Substance: ACETAMINOPHEN
  11. AMBIEN [Concomitant]
     Active Substance: ZOLPIDEM TARTRATE
  12. AMDRY-C [Concomitant]
  13. AMLODIPINE [Concomitant]
     Active Substance: AMLODIPINE BESYLATE
  14. AMOXICILLIN [Concomitant]
     Active Substance: AMOXICILLIN
  15. ANTI-DIARRHEAL [Concomitant]
  16. ASPIRIN [Concomitant]
     Active Substance: ASPIRIN
  17. AZITHROMYCIN [Concomitant]
     Active Substance: AZITHROMYCIN
  18. CARVEDILOL [Concomitant]
     Active Substance: CARVEDILOL
  19. CEPHALEXIN [Concomitant]
     Active Substance: CEPHALEXIN
  20. CIPROFLOXACIN [Concomitant]
     Active Substance: CIPROFLOXACIN
  21. CLARINEX [Concomitant]
     Active Substance: DESLORATADINE
  22. BETAMETHASONE DIPROPIONATE\CLOTRIMAZOLE [Concomitant]
     Active Substance: BETAMETHASONE DIPROPIONATE\CLOTRIMAZOLE
  23. COREG [Concomitant]
     Active Substance: CARVEDILOL
  24. DILTIAZEM [Concomitant]
     Active Substance: DILTIAZEM
  25. DIOVAN [Concomitant]
     Active Substance: VALSARTAN
  26. DOCUSATE [Concomitant]
     Active Substance: DOCUSATE
  27. ED A HIST [Concomitant]
  28. CHLORPHENIRAMINE MALEATE\HYDROCODONE\PHENYLEPHRINE [Concomitant]
     Active Substance: CHLORPHENIRAMINE MALEATE\HYDROCODONE\PHENYLEPHRINE
  29. EPZICOM [Concomitant]
     Active Substance: ABACAVIR SULFATE\LAMIVUDINE
     Indication: HIV infection
  30. FE C [Concomitant]
  31. FEXOFENADINE [Concomitant]
     Active Substance: FEXOFENADINE HYDROCHLORIDE
  32. FLONASE [Concomitant]
     Active Substance: FLUTICASONE PROPIONATE
  33. FLUCONAZOLE [Concomitant]
     Active Substance: FLUCONAZOLE
  34. FLUOCINONIDE [Concomitant]
     Active Substance: FLUOCINONIDE
  35. FUROSEMIDE [Concomitant]
     Active Substance: FUROSEMIDE
  36. HYDROCHLOROTHIAZIDE [Concomitant]
     Active Substance: HYDROCHLOROTHIAZIDE
  37. HYDROCODONE [Concomitant]
     Active Substance: HYDROCODONE
  38. HYDRO-PC [Concomitant]
  39. IBUPROFEN [Concomitant]
     Active Substance: IBUPROFEN
  40. INVEGA [Concomitant]
     Active Substance: PALIPERIDONE
  41. KETOCONAZOLE [Concomitant]
     Active Substance: KETOCONAZOLE
  42. LISINOPRIL [Concomitant]
     Active Substance: LISINOPRIL
  43. LODRANE D [Concomitant]
     Active Substance: BROMPHENIRAMINE MALEATE\PSEUDOEPHEDRINE HYDROCHLORIDE
  44. LORAZEPAM [Concomitant]
     Active Substance: LORAZEPAM
  45. MEGESTROL [Concomitant]
     Active Substance: MEGESTROL
  46. METHOCARBAMOL [Concomitant]
     Active Substance: METHOCARBAMOL
  47. METOPROLOL [Concomitant]
     Active Substance: METOPROLOL
  48. NIFEDICAL XL [Concomitant]
     Active Substance: NIFEDIPINE
  49. OMEPRAZOLE [Concomitant]
     Active Substance: OMEPRAZOLE
  50. ORPHENADRINE [Concomitant]
     Active Substance: ORPHENADRINE
  51. OXYCODONE [Concomitant]
     Active Substance: OXYCODONE
  52. PENICILLIN V POTASSIUM [Concomitant]
     Active Substance: PENICILLIN V POTASSIUM
  53. PHENYTOIN [Concomitant]
     Active Substance: PHENYTOIN
  54. POTASSIUM CHLORIDE [Concomitant]
     Active Substance: POTASSIUM CHLORIDE
  55. PREMARIN [Concomitant]
     Active Substance: ESTROGENS, CONJUGATED
  56. PROAIR HFA [Concomitant]
     Active Substance: ALBUTEROL SULFATE
  57. PROMETHAZINE [Concomitant]
     Active Substance: PROMETHAZINE HYDROCHLORIDE
  58. QUINDAL [Concomitant]
  59. RAMIPRIL [Concomitant]
     Active Substance: RAMIPRIL
  60. REMERON [Concomitant]
     Active Substance: MIRTAZAPINE
  61. SINGULAIR [Concomitant]
     Active Substance: MONTELUKAST SODIUM
  62. SM LORATADINE [Concomitant]
  63. SULF [Concomitant]
  64. SUMATRIPTAN [Concomitant]
     Active Substance: SUMATRIPTAN
  65. TRAMADOL [Concomitant]
     Active Substance: TRAMADOL
  66. HYDROCHLOROTHIAZIDE\TRIAMTERENE [Concomitant]
     Active Substance: HYDROCHLOROTHIAZIDE\TRIAMTERENE
  67. TRIAZOLAM [Concomitant]
     Active Substance: TRIAZOLAM
  68. VENLAFAXINE [Concomitant]
     Active Substance: VENLAFAXINE HYDROCHLORIDE
  69. VERAPAMIL [Concomitant]
     Active Substance: VERAPAMIL HYDROCHLORIDE
  70. VIGAMOX [Concomitant]
     Active Substance: MOXIFLOXACIN HYDROCHLORIDE
  71. ZITHROMAX [Concomitant]
     Active Substance: AZITHROMYCIN DIHYDRATE
  72. ZOLPIDEM TARTRATE [Concomitant]
     Active Substance: ZOLPIDEM TARTRATE
  73. DOXEPIN [Concomitant]
     Active Substance: DOXEPIN
  74. CLARITIN-D NOS [Concomitant]
     Active Substance: LORATADINE\PSEUDOEPHEDRINE SULFATE
  75. TUSSIGON [DEXTROMETHORPHAN HYDROBROMIDE;GUAIFENESIN;PSEUDOEPHEDRINE;SO [Concomitant]
  76. SEROQUEL [Concomitant]
     Active Substance: QUETIAPINE FUMARATE

REACTIONS (15)
  - End stage renal disease [Not Recovered/Not Resolved]
  - Renal impairment [Not Recovered/Not Resolved]
  - Renal impairment [Unknown]
  - Renal failure [Unknown]
  - Pain [Not Recovered/Not Resolved]
  - Anxiety [Not Recovered/Not Resolved]
  - Emotional distress [Not Recovered/Not Resolved]
  - Anhedonia [Not Recovered/Not Resolved]
  - Gout [Not Recovered/Not Resolved]
  - Hypertension [Unknown]
  - Depression [Not Recovered/Not Resolved]
  - Nephropathy [Unknown]
  - Dysuria [Not Recovered/Not Resolved]
  - Bowel movement irregularity [Not Recovered/Not Resolved]
  - Alopecia [Not Recovered/Not Resolved]

NARRATIVE: CASE EVENT DATE: 20100101
